FAERS Safety Report 14376628 (Version 1)
Quarter: 2018Q1

REPORT INFORMATION
  Report Type: Spontaneous
  Country: US (occurrence: US)
  Receive Date: 20180110
  Receipt Date: 20180110
  Transmission Date: 20180509
  Serious: No
  Sender: FDA-Public Use
  Company Number: None

PATIENT
  Age: 79 Year
  Sex: Male

DRUGS (11)
  1. GLUCOTROL [Concomitant]
     Active Substance: GLIPIZIDE
  2. CITALOPRAM HYDROBROMIDE. [Concomitant]
     Active Substance: CITALOPRAM HYDROBROMIDE
  3. PRESNISONE [Concomitant]
  4. GLIPIZIDE. [Concomitant]
     Active Substance: GLIPIZIDE
  5. CITALOPRAM HYBROBROMIDE [Concomitant]
  6. MIRTAZAPINE. [Concomitant]
     Active Substance: MIRTAZAPINE
  7. PROBIOTIC ACIDOPHILUS BEADS [Concomitant]
  8. ROXICODONE [Concomitant]
     Active Substance: OXYCODONE HYDROCHLORIDE
  9. ZYTIGA [Suspect]
     Active Substance: ABIRATERONE ACETATE
     Indication: PROSTATE CANCER
     Route: 048
     Dates: start: 20170825
  10. OMEPRAZOLE DR [Concomitant]
     Active Substance: OMEPRAZOLE
  11. CELEXA [Concomitant]
     Active Substance: CITALOPRAM HYDROBROMIDE

REACTIONS (2)
  - Insomnia [None]
  - Incontinence [None]
